FAERS Safety Report 6252457-1 (Version None)
Quarter: 2009Q3

REPORT INFORMATION
  Report Type: 
  Country: None (occurrence: None)
  Receive Date: 20090701
  Receipt Date: 20090618
  Transmission Date: 20100115
  Serious: Yes (Life-Threatening)
  Sender: FDA-Public Use
  Company Number: JP-BRISTOL-MYERS SQUIBB COMPANY-14675318

PATIENT
  Age: 48 Year
  Sex: Male

DRUGS (11)
  1. REYATAZ [Suspect]
     Indication: HIV INFECTION
     Route: 048
     Dates: start: 20060314
  2. RETROVIR [Suspect]
     Indication: HIV INFECTION
     Route: 048
     Dates: start: 20050401
  3. EPIVIR [Suspect]
     Indication: HIV INFECTION
     Route: 048
     Dates: start: 20050401
  4. NORVIR [Suspect]
     Indication: HIV INFECTION
     Dosage: NORVIR SOFT
     Route: 048
     Dates: start: 20060304
  5. ASPIRIN [Concomitant]
     Route: 048
     Dates: start: 20060215
  6. PANALDINE [Concomitant]
     Route: 048
     Dates: start: 20060215, end: 20081015
  7. PLETAL [Concomitant]
     Route: 048
     Dates: start: 20060215, end: 20081015
  8. WARFARIN POTASSIUM [Concomitant]
     Route: 048
     Dates: start: 20060215, end: 20081015
  9. ARTIST [Concomitant]
     Route: 048
     Dates: start: 20060215
  10. DIOVAN [Concomitant]
     Route: 048
     Dates: start: 20060215
  11. GASTER D [Concomitant]
     Route: 048
     Dates: start: 20060215

REACTIONS (1)
  - MYOCARDIAL INFARCTION [None]
